FAERS Safety Report 12536963 (Version 1)
Quarter: 2016Q3

REPORT INFORMATION
  Report Type: Spontaneous
  Country: SI (occurrence: SI)
  Receive Date: 20160707
  Receipt Date: 20160707
  Transmission Date: 20161109
  Serious: Yes (Life-Threatening)
  Sender: FDA-Public Use
  Company Number: SI-ELI_LILLY_AND_COMPANY-SI201607000130

PATIENT
  Age: 66 Year
  Sex: Male

DRUGS (13)
  1. MIRAPEXIN [Concomitant]
     Active Substance: PRAMIPEXOLE
     Dosage: 1 DF, UNKNOWN
     Route: 048
  2. CYMBALTA [Suspect]
     Active Substance: DULOXETINE HYDROCHLORIDE
     Indication: DEPRESSION
     Dosage: 1 DF, QD
     Route: 048
     Dates: start: 20160425, end: 20160617
  3. FENTANYL TORREX [Suspect]
     Active Substance: FENTANYL CITRATE
     Indication: ANAESTHESIA
     Dosage: 10 ML, SINGLE
     Route: 042
     Dates: start: 20160530, end: 20160530
  4. LANITOP [Concomitant]
     Active Substance: METILDIGOXIN
     Dosage: 0.1 MG, UNKNOWN
     Route: 048
  5. LISKANTIN [Concomitant]
     Active Substance: PRIMIDONE
     Dosage: 1 DF, UNKNOWN
     Route: 048
  6. SYMBICORT [Concomitant]
     Active Substance: BUDESONIDE\FORMOTEROL FUMARATE DIHYDRATE
     Dosage: 1 DF, UNKNOWN
     Route: 048
  7. ASENTRA [Suspect]
     Active Substance: SERTRALINE HYDROCHLORIDE
     Indication: DEPRESSION
     Dosage: 1 DF, BID
     Route: 048
     Dates: start: 20160425, end: 20160617
  8. EDEMID [Concomitant]
     Active Substance: FUROSEMIDE
     Dosage: 1 DF, UNKNOWN
     Route: 048
  9. PRENESSA [Concomitant]
     Active Substance: PERINDOPRIL
     Dosage: UNK, UNKNOWN
     Route: 048
  10. COMBODART [Concomitant]
     Active Substance: DUTASTERIDE\TAMSULOSIN
     Dosage: 1 DF, UNKNOWN
     Route: 048
  11. SANVAL [Concomitant]
     Active Substance: ZOLPIDEM TARTRATE
     Dosage: 1 DF, UNKNOWN
     Route: 048
  12. PROPRANOLOL [Concomitant]
     Active Substance: PROPRANOLOL\PROPRANOLOL HYDROCHLORIDE
     Dosage: 1 DF, UNKNOWN
     Route: 048
  13. EMSELEX                            /01760401/ [Concomitant]
     Active Substance: DARIFENACIN HYDROBROMIDE
     Dosage: 1 DF, UNKNOWN
     Route: 048

REACTIONS (5)
  - Hyperthermia [Not Recovered/Not Resolved]
  - Serotonin syndrome [Not Recovered/Not Resolved]
  - General physical condition abnormal [Not Recovered/Not Resolved]
  - Knee operation [Not Recovered/Not Resolved]
  - Tremor [Not Recovered/Not Resolved]

NARRATIVE: CASE EVENT DATE: 20160530
